FAERS Safety Report 10108475 (Version 2)
Quarter: 2014Q2

REPORT INFORMATION
  Report Type: Spontaneous
  Country: DE (occurrence: DE)
  Receive Date: 20140425
  Receipt Date: 20140425
  Transmission Date: 20141212
  Serious: Yes (Hospitalization, Other)
  Sender: FDA-Public Use
  Company Number: DE-ROCHE-1364990

PATIENT
  Age: 59 Year
  Sex: Female
  Weight: 64 kg

DRUGS (8)
  1. ROACTEMRA [Suspect]
     Indication: RHEUMATOID ARTHRITIS
     Dosage: ONLY ONE ADMINISTRATION GIVEN
     Route: 065
     Dates: start: 20140109, end: 20140109
  2. RANTUDIL [Suspect]
     Indication: PRODUCT USED FOR UNKNOWN INDICATION
     Route: 065
  3. OPIPRAMOL [Suspect]
     Indication: PRODUCT USED FOR UNKNOWN INDICATION
     Route: 065
  4. PREDNISOLON [Concomitant]
     Indication: RHEUMATOID ARTHRITIS
     Route: 065
  5. L-THYROXIN [Concomitant]
     Route: 065
  6. METFORMIN [Concomitant]
     Route: 065
  7. OMEPRAZOL [Concomitant]
     Route: 065
  8. VITAMIN C [Concomitant]
     Route: 065

REACTIONS (3)
  - Transaminases increased [Recovering/Resolving]
  - Hepatic failure [Recovering/Resolving]
  - Abdominal pain [Recovered/Resolved]
